FAERS Safety Report 6499895-X (Version None)
Quarter: 2009Q4

REPORT INFORMATION
  Report Type: 
  Country: None (occurrence: None)
  Receive Date: 20091214
  Receipt Date: 20091214
  Transmission Date: 20100525
  Serious: Yes (Other)
  Sender: FDA-Public Use
  Company Number: None

PATIENT
  Sex: Female
  Weight: 66.36 kg

DRUGS (1)
  1. CIPROFLOXACIN [Suspect]
     Indication: PNEUMONIA
     Dates: start: 20091116, end: 20091119

REACTIONS (1)
  - ELECTROCARDIOGRAM QT PROLONGED [None]
